FAERS Safety Report 6657127-3 (Version None)
Quarter: 2010Q1

REPORT INFORMATION
  Report Type: 
  Country: None (occurrence: None)
  Receive Date: 20100330
  Receipt Date: 20100318
  Transmission Date: 20100710
  Serious: Yes (Other)
  Sender: FDA-Public Use
  Company Number: US-JNJFOC-20100306101

PATIENT

DRUGS (1)
  1. HALOPERIDOL DECANOATE [Suspect]
     Indication: DRUG USE FOR UNKNOWN INDICATION
     Route: 030

REACTIONS (2)
  - HALLUCINATION [None]
  - PRODUCT QUALITY ISSUE [None]
